FAERS Safety Report 5468265-5 (Version None)
Quarter: 2007Q3

REPORT INFORMATION
  Report Type: 
  Country: None (occurrence: None)
  Receive Date: 20070924
  Receipt Date: 20070906
  Transmission Date: 20080115
  Serious: Yes (Other)
  Sender: FDA-Public Use
  Company Number: 2005JP001210

PATIENT
  Age: 52 Year
  Sex: Male
  Weight: 50 kg

DRUGS (18)
  1. PROGRAF [Suspect]
     Indication: LIVER TRANSPLANT
     Dosage: 2.5 MG, D, ORAL, 2 MG, D, ORAL
     Route: 048
     Dates: start: 20000704, end: 20000704
  2. PROGRAF [Suspect]
     Indication: LIVER TRANSPLANT
     Dosage: 2.5 MG, D, ORAL, 2 MG, D, ORAL
     Route: 048
     Dates: start: 20000705, end: 20000708
  3. PROGRAF [Suspect]
     Indication: LIVER TRANSPLANT
     Dosage: 0.6 MG, D, IV DRIP, 1 MG, D, IV DRIP, 0.7 MG, D, IV DRIP, 0.8 MG, D, IV DRIP, 0.9 MG, D, IV DRIP
     Route: 041
     Dates: start: 20000629, end: 20000629
  4. PROGRAF [Suspect]
     Indication: LIVER TRANSPLANT
     Dosage: 0.6 MG, D, IV DRIP, 1 MG, D, IV DRIP, 0.7 MG, D, IV DRIP, 0.8 MG, D, IV DRIP, 0.9 MG, D, IV DRIP
     Route: 041
     Dates: start: 20000630, end: 20000630
  5. PROGRAF [Suspect]
     Indication: LIVER TRANSPLANT
     Dosage: 0.6 MG, D, IV DRIP, 1 MG, D, IV DRIP, 0.7 MG, D, IV DRIP, 0.8 MG, D, IV DRIP, 0.9 MG, D, IV DRIP
     Route: 041
     Dates: start: 20000701, end: 20000702
  6. PROGRAF [Suspect]
     Indication: LIVER TRANSPLANT
     Dosage: 0.6 MG, D, IV DRIP, 1 MG, D, IV DRIP, 0.7 MG, D, IV DRIP, 0.8 MG, D, IV DRIP, 0.9 MG, D, IV DRIP
     Route: 041
     Dates: start: 20000702, end: 20000702
  7. PROGRAF [Suspect]
     Indication: LIVER TRANSPLANT
     Dosage: 0.6 MG, D, IV DRIP, 1 MG, D, IV DRIP, 0.7 MG, D, IV DRIP, 0.8 MG, D, IV DRIP, 0.9 MG, D, IV DRIP
     Route: 041
     Dates: start: 20000703, end: 20000703
  8. METHYLPREDNISOLONE [Concomitant]
  9. AMINOLEBAN (AMINO ACIDS NOS) INJECTION [Concomitant]
  10. STRONG NEO-MINOPHAGEN C (AMINOACETIC ACID, GLYCYRRHIZIC ACID, CYSTEINE [Concomitant]
  11. SOLU-MEDROL [Concomitant]
  12. HEPARIN [Concomitant]
  13. FUNGIZONE SYRUP [Concomitant]
  14. BAKTAR (SULFAMETHOXAZOLE, TRIMETHOPRIM) [Concomitant]
  15. SELBEX (TEPRENONE) CAPSULE [Concomitant]
  16. GASTER TABLET [Concomitant]
  17. URSO 250 [Concomitant]
  18. DIPRIVAN [Concomitant]

REACTIONS (4)
  - ALTERED STATE OF CONSCIOUSNESS [None]
  - CONVULSION [None]
  - HYPOCHOLESTEROLAEMIA [None]
  - IMMUNOSUPPRESSANT DRUG LEVEL DECREASED [None]
